FAERS Safety Report 22606291 (Version 1)
Quarter: 2023Q2

REPORT INFORMATION
  Report Type: Spontaneous
  Country: US (occurrence: None)
  Receive Date: 20230614
  Receipt Date: 20230614
  Transmission Date: 20230721
  Serious: No
  Sender: FDA-Public Use
  Company Number: None

PATIENT
  Age: 42 Year
  Sex: Female

DRUGS (1)
  1. SPRYCEL [Suspect]
     Active Substance: DASATINIB
     Indication: Leukaemia
     Dosage: FREQUENCY : DAILY;?
     Route: 048
     Dates: start: 20210603

REACTIONS (4)
  - Nausea [None]
  - Diarrhoea [None]
  - Headache [None]
  - Pyrexia [None]

NARRATIVE: CASE EVENT DATE: 20230601
